FAERS Safety Report 7413382-3 (Version None)
Quarter: 2011Q2

REPORT INFORMATION
  Report Type: 
  Country: None (occurrence: None)
  Receive Date: 20110413
  Receipt Date: 20110125
  Transmission Date: 20111010
  Serious: No
  Sender: FDA-Public Use
  Company Number: US-B.I. PHARMACEUTICALS,INC./RIDGEFIELD-2011-BP-02556BP

PATIENT
  Sex: Female

DRUGS (8)
  1. SPIRALDACTRIM [Concomitant]
     Indication: BLOOD PRESSURE INCREASED
     Dosage: 25 MG
  2. SIMVASTATIN [Concomitant]
     Indication: BLOOD CHOLESTEROL INCREASED
     Dosage: 40 MG
  3. PEPCID [Concomitant]
     Indication: GASTROOESOPHAGEAL REFLUX DISEASE
  4. PRADAXA [Suspect]
     Indication: ATRIAL FIBRILLATION
     Dosage: 300 MG
     Route: 048
     Dates: start: 20110101, end: 20110205
  5. LISINOPRIL [Concomitant]
     Indication: BLOOD PRESSURE INCREASED
     Dosage: 10 MG
  6. SYNTHROID [Concomitant]
     Indication: THYROID DISORDER
  7. MULTI-VITAMIN [Concomitant]
     Indication: PROPHYLAXIS
  8. STEROIDS [Concomitant]

REACTIONS (3)
  - BURNING SENSATION [None]
  - RECTAL HAEMORRHAGE [None]
  - THROMBOSIS [None]
